FAERS Safety Report 14544057 (Version 2)
Quarter: 2018Q1

REPORT INFORMATION
  Report Type: Spontaneous
  Country: CA (occurrence: CA)
  Receive Date: 20180216
  Receipt Date: 20180221
  Transmission Date: 20180509
  Serious: Yes (Other)
  Sender: FDA-Public Use
  Company Number: CA-PFIZER INC-2018070537

PATIENT
  Age: 51 Year
  Sex: Female

DRUGS (9)
  1. ENBREL [Suspect]
     Active Substance: ETANERCEPT
     Dosage: 50 MG, WEEKLY
  2. METHOTREXATE SODIUM. [Suspect]
     Active Substance: METHOTREXATE SODIUM
  3. APO-PREDNISONE [Suspect]
     Active Substance: PREDNISONE
  4. PLAQUENIL /00072602/ [Concomitant]
     Active Substance: HYDROXYCHLOROQUINE DIPHOSPHATE
  5. DIOVAN [Concomitant]
     Active Substance: VALSARTAN
  6. ESOMEPRAZOLE MAGNESIUM. [Suspect]
     Active Substance: ESOMEPRAZOLE MAGNESIUM
  7. PREDNISOLONE. [Suspect]
     Active Substance: PREDNISOLONE
  8. SULFASALAZINE. [Concomitant]
     Active Substance: SULFASALAZINE
  9. FOLIC ACID. [Concomitant]
     Active Substance: FOLIC ACID

REACTIONS (18)
  - Anxiety [Unknown]
  - Arthritis [Unknown]
  - Pain in extremity [Unknown]
  - Abdominal pain upper [Unknown]
  - Nausea [Unknown]
  - Rhinorrhoea [Unknown]
  - Upper-airway cough syndrome [Unknown]
  - Arthralgia [Unknown]
  - Headache [Unknown]
  - Inflammation [Unknown]
  - Joint swelling [Unknown]
  - Fall [Unknown]
  - Muscle strain [Unknown]
  - Neck pain [Unknown]
  - Drug ineffective [Unknown]
  - Joint injury [Unknown]
  - Pain [Unknown]
  - Paraesthesia [Unknown]
